FAERS Safety Report 8480023-6 (Version None)
Quarter: 2012Q2

REPORT INFORMATION
  Report Type: 
  Country: None (occurrence: None)
  Receive Date: 20120629
  Receipt Date: 20120619
  Transmission Date: 20120825
  Serious: Yes (Hospitalization, Other)
  Sender: FDA-Public Use
  Company Number: FR-ELI_LILLY_AND_COMPANY-FR201203004523

PATIENT
  Age: 62 Year
  Sex: Female

DRUGS (3)
  1. KARDEGIC [Concomitant]
     Dosage: UNK
     Route: 065
  2. FORTEO [Suspect]
     Indication: OSTEOPOROSIS
     Dosage: 20 UG, QD
     Route: 058
     Dates: start: 20110325
  3. PROPRANOLOL [Concomitant]
     Dosage: UNK
     Route: 065

REACTIONS (3)
  - TOOTH FRACTURE [None]
  - FALL [None]
  - SYNCOPE [None]
